FAERS Safety Report 5259336-7 (Version None)
Quarter: 2007Q1

REPORT INFORMATION
  Report Type: 
  Country: None (occurrence: None)
  Receive Date: 20070302
  Receipt Date: 20070221
  Transmission Date: 20070707
  Serious: Yes (Disabling)
  Sender: FDA-Public Use
  Company Number: 2007-155052-NL

PATIENT
  Age: 8 Month
  Sex: Male

DRUGS (5)
  1. VECURONIUM BROMIDE [Suspect]
     Indication: LIFE SUPPORT
     Dosage: 1.5 MG Q1HR
     Route: 041
     Dates: start: 20020701, end: 20030101
  2. MIDAZOLAM HYDROCHLORIDE [Concomitant]
  3. LASIX [Concomitant]
  4. DEXAMETHASONE [Concomitant]
  5. FAMOTIDINE [Concomitant]

REACTIONS (1)
  - DEAFNESS NEUROSENSORY [None]
